FAERS Safety Report 16739530 (Version 2)
Quarter: 2019Q3

REPORT INFORMATION
  Report Type: Spontaneous
  Country: FR (occurrence: FR)
  Receive Date: 20190826
  Receipt Date: 20190826
  Transmission Date: 20191005
  Serious: Yes (Hospitalization, Other)
  Sender: FDA-Public Use
  Company Number: PHHY2019FR197931

PATIENT
  Age: 90 Year
  Sex: Female

DRUGS (7)
  1. TENSIONORME [Suspect]
     Active Substance: BENDROFLUMETHIAZIDE\RESERPINE
     Indication: HYPERTENSION
     Dosage: 41 DF, UNK, 2,5 MG-0,1 MG
     Route: 048
     Dates: end: 20190801
  2. ASPEGIC [ACETYLSALICYLATE LYSINE] [Suspect]
     Active Substance: ASPIRIN DL-LYSINE
     Indication: OSTEOARTHRITIS
     Dosage: 1000 MG, QD
     Route: 048
     Dates: end: 20190731
  3. PARACETAMOL [Concomitant]
     Active Substance: ACETAMINOPHEN
     Indication: PRODUCT USED FOR UNKNOWN INDICATION
     Dosage: UNK
     Route: 065
  4. FEMARA [Concomitant]
     Active Substance: LETROZOLE
     Indication: PRODUCT USED FOR UNKNOWN INDICATION
     Dosage: UNK
     Route: 065
  5. AMLODIPINE [Concomitant]
     Active Substance: AMLODIPINE BESYLATE
     Indication: PRODUCT USED FOR UNKNOWN INDICATION
     Dosage: UNK
     Route: 065
  6. ADENURIC [Concomitant]
     Active Substance: FEBUXOSTAT
     Indication: PRODUCT USED FOR UNKNOWN INDICATION
     Dosage: UNK
     Route: 065
  7. DICLOFENAC [Suspect]
     Active Substance: DICLOFENAC
     Indication: OSTEOARTHRITIS
     Dosage: 3 DF, TID 1 APPLICATION 3 TIMES/DAY
     Route: 003
     Dates: end: 20190731

REACTIONS (4)
  - Gastric ulcer [Recovering/Resolving]
  - Melaena [Recovering/Resolving]
  - Iron deficiency anaemia [Recovering/Resolving]
  - Dyspnoea exertional [Recovering/Resolving]

NARRATIVE: CASE EVENT DATE: 201907
